FAERS Safety Report 17893517 (Version 2)
Quarter: 2024Q4

REPORT INFORMATION
  Report Type: Spontaneous
  Country: US (occurrence: US)
  Receive Date: 20200615
  Receipt Date: 20241203
  Transmission Date: 20250115
  Serious: Yes (Other)
  Sender: CIPLA
  Company Number: US-CIPLA LTD.-2020US03968

PATIENT

DRUGS (49)
  1. TOPIRAMATE [Suspect]
     Active Substance: TOPIRAMATE
     Indication: Hemiparesis
     Dosage: UNK
     Route: 065
  2. TOPIRAMATE [Suspect]
     Active Substance: TOPIRAMATE
     Indication: Partial seizures
  3. TOPIRAMATE [Suspect]
     Active Substance: TOPIRAMATE
     Indication: Generalised tonic-clonic seizure
  4. LEVETIRACETAM [Suspect]
     Active Substance: LEVETIRACETAM
     Indication: Hemiparesis
     Dosage: UNK
     Route: 065
  5. LEVETIRACETAM [Suspect]
     Active Substance: LEVETIRACETAM
     Indication: Partial seizures
  6. LEVETIRACETAM [Suspect]
     Active Substance: LEVETIRACETAM
     Indication: Generalised tonic-clonic seizure
  7. MIDAZOLAM [Suspect]
     Active Substance: MIDAZOLAM
     Indication: Hemiparesis
     Dosage: UNK
     Route: 065
  8. MIDAZOLAM [Suspect]
     Active Substance: MIDAZOLAM
     Indication: Partial seizures
  9. MIDAZOLAM [Suspect]
     Active Substance: MIDAZOLAM
     Indication: Generalised tonic-clonic seizure
  10. LACOSAMIDE [Suspect]
     Active Substance: LACOSAMIDE
     Indication: Hemiparesis
     Dosage: UNK
     Route: 065
  11. LACOSAMIDE [Suspect]
     Active Substance: LACOSAMIDE
     Indication: Partial seizures
  12. LACOSAMIDE [Suspect]
     Active Substance: LACOSAMIDE
     Indication: Generalised tonic-clonic seizure
  13. FOSPHENYTOIN [Suspect]
     Active Substance: FOSPHENYTOIN
     Indication: Hemiparesis
     Dosage: UNK
     Route: 065
  14. FOSPHENYTOIN [Suspect]
     Active Substance: FOSPHENYTOIN
     Indication: Partial seizures
  15. FOSPHENYTOIN [Suspect]
     Active Substance: FOSPHENYTOIN
     Indication: Generalised tonic-clonic seizure
  16. PERAMPANEL [Suspect]
     Active Substance: PERAMPANEL
     Indication: Hemiparesis
     Dosage: UNK
     Route: 065
  17. PERAMPANEL [Suspect]
     Active Substance: PERAMPANEL
     Indication: Partial seizures
  18. PERAMPANEL [Suspect]
     Active Substance: PERAMPANEL
     Indication: Generalised tonic-clonic seizure
  19. CLOBAZAM [Suspect]
     Active Substance: CLOBAZAM
     Indication: Hemiparesis
     Dosage: UNK
     Route: 065
  20. CLOBAZAM [Suspect]
     Active Substance: CLOBAZAM
     Indication: Partial seizures
  21. CLOBAZAM [Suspect]
     Active Substance: CLOBAZAM
     Indication: Generalised tonic-clonic seizure
  22. PROPOFOL [Suspect]
     Active Substance: PROPOFOL
     Indication: Hemiparesis
     Dosage: MAXIMUM RATE 80MCG/KG/MIN
     Route: 065
  23. PROPOFOL [Suspect]
     Active Substance: PROPOFOL
     Indication: Partial seizures
  24. PROPOFOL [Suspect]
     Active Substance: PROPOFOL
     Indication: Generalised tonic-clonic seizure
  25. PENTOBARBITAL [Suspect]
     Active Substance: PENTOBARBITAL
     Indication: Hemiparesis
     Dosage: MAXIMUM RATE 4 MG/KG/H
     Route: 065
  26. PENTOBARBITAL [Suspect]
     Active Substance: PENTOBARBITAL
     Indication: Partial seizures
  27. PENTOBARBITAL [Suspect]
     Active Substance: PENTOBARBITAL
     Indication: Generalised tonic-clonic seizure
  28. MAGNESIUM [Suspect]
     Active Substance: MAGNESIUM
     Indication: Hemiparesis
     Dosage: UNK
     Route: 065
  29. MAGNESIUM [Suspect]
     Active Substance: MAGNESIUM
     Indication: Partial seizures
  30. MAGNESIUM [Suspect]
     Active Substance: MAGNESIUM
     Indication: Generalised tonic-clonic seizure
  31. VALPROIC ACID [Suspect]
     Active Substance: VALPROIC ACID
     Indication: Hemiparesis
     Dosage: UNK
     Route: 065
  32. VALPROIC ACID [Suspect]
     Active Substance: VALPROIC ACID
     Indication: Partial seizures
  33. VALPROIC ACID [Suspect]
     Active Substance: VALPROIC ACID
     Indication: Generalised tonic-clonic seizure
  34. CARNITINE [Suspect]
     Active Substance: CARNITINE
     Indication: Product used for unknown indication
     Dosage: UNK
     Route: 065
  35. KETAMINE [Suspect]
     Active Substance: KETAMINE
     Indication: Hemiparesis
     Dosage: UNK
     Route: 065
  36. KETAMINE [Suspect]
     Active Substance: KETAMINE
     Indication: Partial seizures
  37. KETAMINE [Suspect]
     Active Substance: KETAMINE
     Indication: Generalised tonic-clonic seizure
  38. LAMOTRIGINE [Suspect]
     Active Substance: LAMOTRIGINE
     Indication: Hemiparesis
     Dosage: UNK
     Route: 065
  39. LAMOTRIGINE [Suspect]
     Active Substance: LAMOTRIGINE
     Indication: Partial seizures
  40. LAMOTRIGINE [Suspect]
     Active Substance: LAMOTRIGINE
     Indication: Generalised tonic-clonic seizure
  41. CLONAZEPAM [Suspect]
     Active Substance: CLONAZEPAM
     Indication: Hemiparesis
     Dosage: UNK
     Route: 065
  42. CLONAZEPAM [Suspect]
     Active Substance: CLONAZEPAM
     Indication: Partial seizures
  43. CLONAZEPAM [Suspect]
     Active Substance: CLONAZEPAM
     Indication: Generalised tonic-clonic seizure
  44. PYRIDOXINE [Suspect]
     Active Substance: PYRIDOXINE
     Indication: Hemiparesis
     Dosage: UNK
     Route: 065
  45. PYRIDOXINE [Suspect]
     Active Substance: PYRIDOXINE
     Indication: Partial seizures
  46. PYRIDOXINE [Suspect]
     Active Substance: PYRIDOXINE
     Indication: Generalised tonic-clonic seizure
  47. PHENYTOIN [Suspect]
     Active Substance: PHENYTOIN
     Indication: Hemiparesis
     Dosage: UNK
     Route: 065
  48. PHENYTOIN [Suspect]
     Active Substance: PHENYTOIN
     Indication: Partial seizures
  49. PHENYTOIN [Suspect]
     Active Substance: PHENYTOIN
     Indication: Generalised tonic-clonic seizure

REACTIONS (2)
  - Treatment failure [Unknown]
  - Exposure during pregnancy [Unknown]
